FAERS Safety Report 9016151 (Version 1)
Quarter: 2013Q1

REPORT INFORMATION
  Report Type: Spontaneous
  Country: US (occurrence: US)
  Receive Date: 20130116
  Receipt Date: 20130116
  Transmission Date: 20140127
  Serious: Yes (Hospitalization)
  Sender: FDA-Public Use
  Company Number: US-PFIZER INC-2013016081

PATIENT
  Age: 48 Year
  Sex: Female

DRUGS (4)
  1. ZOLOFT [Suspect]
     Dosage: 150 MG, 1 IN 1D
     Route: 048
     Dates: start: 201212
  2. DESIPRAMINE [Suspect]
     Indication: DEPRESSION
     Dosage: UNK
     Dates: start: 201212, end: 20121221
  3. VIIBRYD [Suspect]
     Indication: DEPRESSION
     Dosage: 10 MG, (10 MG 1 IN 1D)
     Route: 048
     Dates: start: 201211, end: 2012
  4. VIIBRYD [Suspect]
     Dosage: 40 MG, (40 MG, 1 IN 1D)
     Route: 048
     Dates: start: 2012, end: 20121221

REACTIONS (5)
  - Nausea [Not Recovered/Not Resolved]
  - Vomiting [Not Recovered/Not Resolved]
  - Dehydration [Not Recovered/Not Resolved]
  - Anxiety [Not Recovered/Not Resolved]
  - Condition aggravated [Not Recovered/Not Resolved]
